FAERS Safety Report 17226296 (Version 1)
Quarter: 2020Q1

REPORT INFORMATION
  Report Type: Spontaneous
  Country: US (occurrence: US)
  Receive Date: 20200102
  Receipt Date: 20200102
  Transmission Date: 20200409
  Serious: No
  Sender: FDA-Public Use
  Company Number: US-FOUNDATIONCONSUMERHC-2019-US-020112

PATIENT
  Age: 26 Year
  Sex: Female
  Weight: 58.06 kg

DRUGS (6)
  1. UNSPECIFIED LAXATIVE (UNSPECIFIED INGREDIENT) [Suspect]
     Active Substance: UNSPECIFIED INGREDIENT
  2. CLARITIN [Concomitant]
     Active Substance: LORATADINE
  3. MULTIVITAMIN [Concomitant]
     Active Substance: VITAMINS
  4. PLAN B ONE-STEP [Suspect]
     Active Substance: LEVONORGESTREL
     Indication: POST COITAL CONTRACEPTION
     Dosage: 1.5 MG X 1 DOSE
     Route: 048
     Dates: start: 20191021, end: 20191021
  5. GINGER SUPPLEMENT [Concomitant]
  6. BENADRYL [Concomitant]
     Active Substance: DIPHENHYDRAMINE HYDROCHLORIDE

REACTIONS (1)
  - Nausea [Recovered/Resolved]

NARRATIVE: CASE EVENT DATE: 20191022
